FAERS Safety Report 10342370 (Version 5)
Quarter: 2015Q1

REPORT INFORMATION
  Report Type: Spontaneous
  Country: US (occurrence: US)
  Receive Date: 20140725
  Receipt Date: 20150203
  Transmission Date: 20150720
  Serious: Yes (Hospitalization, Other)
  Sender: FDA-Public Use
  Company Number: US-GLAXOSMITHKLINE-A1053570A

PATIENT
  Sex: Female

DRUGS (10)
  1. TRAZODONE [Concomitant]
     Active Substance: TRAZODONE HYDROCHLORIDE
  2. VITAMIN D [Concomitant]
     Active Substance: CHOLECALCIFEROL
  3. LAMICTAL [Suspect]
     Active Substance: LAMOTRIGINE
     Dosage: 400 MG, U
  4. CELEXA [Concomitant]
     Active Substance: CITALOPRAM HYDROBROMIDE
  5. LAMICTAL [Suspect]
     Active Substance: LAMOTRIGINE
     Indication: EPILEPSY
     Dosage: 600 MG, U
  6. DEPAKOTE [Suspect]
     Active Substance: DIVALPROEX SODIUM
     Dosage: UNKNOWN STRENGTH AND DOSING
  7. LAMOTRIGINE. [Suspect]
     Active Substance: LAMOTRIGINE
     Indication: EPILEPSY
  8. CEREFOLIN NAC [Concomitant]
  9. LAMICTAL [Suspect]
     Active Substance: LAMOTRIGINE
     Indication: SEIZURE
     Dosage: 500 MG, UNKNOWN DOSINGWAS ALSO TAKING 600 MG XR IN 2012
     Route: 048
     Dates: start: 2012
  10. ZONEGRAN [Concomitant]
     Active Substance: ZONISAMIDE

REACTIONS (10)
  - Joint swelling [Recovered/Resolved]
  - Drug hypersensitivity [Unknown]
  - Overdose [Unknown]
  - Mental disorder [Unknown]
  - Fall [Unknown]
  - Drug interaction [Unknown]
  - Seizure [Unknown]
  - Arthralgia [Recovered/Resolved]
  - Adverse drug reaction [Unknown]
  - Suicide attempt [Unknown]

NARRATIVE: CASE EVENT DATE: 2012
